FAERS Safety Report 9395364 (Version 1)
Quarter: 2013Q3

REPORT INFORMATION
  Report Type: Spontaneous
  Country: US (occurrence: US)
  Receive Date: 20130711
  Receipt Date: 20130711
  Transmission Date: 20140515
  Serious: No
  Sender: FDA-Public Use
  Company Number: US-ASTELLAS-2013US005773

PATIENT
  Age: 79 Year
  Sex: Male

DRUGS (2)
  1. MYRBETRIQ [Suspect]
     Indication: BLADDER DISORDER
     Dosage: 25 MG, UID/QD
     Route: 048
     Dates: end: 201305
  2. MYRBETRIQ [Suspect]
     Dosage: 50 MG, QOD
     Route: 048
     Dates: start: 201305, end: 201305

REACTIONS (3)
  - Drug ineffective [Unknown]
  - Inappropriate schedule of drug administration [Unknown]
  - Insomnia [Unknown]
